FAERS Safety Report 8271988-6 (Version None)
Quarter: 2012Q2

REPORT INFORMATION
  Report Type: 
  Country: None (occurrence: None)
  Receive Date: 20120410
  Receipt Date: 20120329
  Transmission Date: 20120825
  Serious: Yes (Death, Hospitalization)
  Sender: FDA-Public Use
  Company Number: DE-PFIZER INC-2012086991

PATIENT
  Sex: Male

DRUGS (1)
  1. ARGATROBAN [Suspect]
     Indication: ANTICOAGULANT THERAPY
     Dosage: 0.02 - 0.42 MCG/KG/MIN
     Route: 042

REACTIONS (3)
  - HAEMORRHAGE [None]
  - EMBOLISM [None]
  - DEATH [None]
